FAERS Safety Report 7745357-9 (Version None)
Quarter: 2011Q3

REPORT INFORMATION
  Report Type: 
  Country: None (occurrence: None)
  Receive Date: 20110825
  Receipt Date: 20110531
  Transmission Date: 20111222
  Serious: No
  Sender: FDA-Public Use
  Company Number: 329215

PATIENT
  Age: 55 Year
  Sex: Female

DRUGS (3)
  1. NOVOLOG (INSULIN ASPART) SOLUTION [Concomitant]
  2. LEMIR (INSULIN DETERMIR) SOLUTION [Concomitant]
  3. VICTOZA [Suspect]
     Indication: TYPE 2 DIABETES MELLITUS
     Dosage: 1.2 MG, QD

REACTIONS (5)
  - NAUSEA [None]
  - ABDOMINAL PAIN UPPER [None]
  - WEIGHT DECREASED [None]
  - ERUCTATION [None]
  - DECREASED APPETITE [None]
